FAERS Safety Report 25554217 (Version 1)
Quarter: 2025Q3

REPORT INFORMATION
  Report Type: Spontaneous
  Country: JP (occurrence: JP)
  Receive Date: 20250715
  Receipt Date: 20250715
  Transmission Date: 20251020
  Serious: Yes (Other)
  Sender: PFIZER
  Company Number: JP-PFIZER INC-PV202500083761

PATIENT
  Age: 34 Year
  Sex: Male

DRUGS (4)
  1. FOSPHENYTOIN SODIUM [Suspect]
     Active Substance: FOSPHENYTOIN SODIUM
     Indication: Generalised tonic-clonic seizure
     Dosage: 1500 MG, 1X/DAY
     Route: 042
     Dates: start: 20250622, end: 20250623
  2. LEVETIRACETAM [Concomitant]
     Active Substance: LEVETIRACETAM
     Indication: Epilepsy
     Route: 048
     Dates: start: 20240308
  3. YD SOLITA T NO.3 [Concomitant]
     Route: 042
     Dates: start: 20250622
  4. FYCOMPA [Concomitant]
     Active Substance: PERAMPANEL
     Dosage: 2 MG, 1X/DAY
     Dates: start: 20250623

REACTIONS (2)
  - Sinus node dysfunction [Recovered/Resolved]
  - Cardiac arrest [Recovered/Resolved]

NARRATIVE: CASE EVENT DATE: 20250623
